FAERS Safety Report 8047054-1 (Version None)
Quarter: 2012Q1

REPORT INFORMATION
  Report Type: 
  Country: None (occurrence: None)
  Receive Date: 20120116
  Receipt Date: 20120109
  Transmission Date: 20120608
  Serious: Yes (Congenital Anomaly, Other)
  Sender: FDA-Public Use
  Company Number: US-UCBSA-049377

PATIENT
  Age: 24 Hour
  Sex: Female
  Weight: 2.94 kg

DRUGS (1)
  1. KEPPRA [Suspect]
     Indication: EPILEPSY
     Dosage: DOSE: 3000MG
     Route: 064
     Dates: end: 20110612

REACTIONS (2)
  - FOETAL EXPOSURE DURING PREGNANCY [None]
  - SYNDACTYLY [None]
